FAERS Safety Report 18904553 (Version 1)
Quarter: 2021Q1

REPORT INFORMATION
  Report Type: Spontaneous
  Country: US (occurrence: US)
  Receive Date: 20210217
  Receipt Date: 20210217
  Transmission Date: 20210420
  Serious: No
  Sender: FDA-Public Use
  Company Number: US-BLUEPRINT MEDICINES CORPORATION-SP-US-2021-000122

PATIENT
  Sex: Male

DRUGS (1)
  1. AYVAKIT [Suspect]
     Active Substance: AVAPRITINIB
     Indication: SYSTEMIC MASTOCYTOSIS
     Route: 048
     Dates: start: 20201230

REACTIONS (3)
  - Joint swelling [Unknown]
  - Off label use [Not Recovered/Not Resolved]
  - Periorbital oedema [Unknown]
